FAERS Safety Report 4449143-7 (Version None)
Quarter: 2004Q3

REPORT INFORMATION
  Report Type: 
  Country: None (occurrence: None)
  Receive Date: 20040910
  Receipt Date: 20040903
  Transmission Date: 20050211
  Serious: No
  Sender: FDA-Public Use
  Company Number: 2004GB02157

PATIENT
  Age: 46 Year
  Sex: Female

DRUGS (1)
  1. SEROQUEL [Suspect]
     Indication: THINKING ABNORMAL
     Dosage: 300 MG DAILY PO
     Route: 048
     Dates: start: 20040201

REACTIONS (4)
  - LIVER DISORDER [None]
  - MENSTRUATION IRREGULAR [None]
  - THYROID DISORDER [None]
  - WEIGHT INCREASED [None]
